FAERS Safety Report 10152784 (Version 1)
Quarter: 2014Q2

REPORT INFORMATION
  Report Type: Spontaneous
  Country: US (occurrence: US)
  Receive Date: 20140505
  Receipt Date: 20140505
  Transmission Date: 20141212
  Serious: Yes (Death, Other)
  Sender: FDA-Public Use
  Company Number: US-PFIZER INC-2014121601

PATIENT
  Age: 62 Year
  Sex: Female
  Weight: 68.03 kg

DRUGS (7)
  1. LYRICA [Suspect]
     Indication: DIABETIC NEUROPATHY
     Dosage: 75 MG, UNK
     Dates: start: 201403, end: 201403
  2. LYRICA [Suspect]
     Dosage: 75 MG, 2X/DAY
  3. IBUPROFEN [Concomitant]
     Dosage: UNK
  4. ATORVASTATIN [Concomitant]
     Dosage: 40 MG, UNK
  5. METFORMIN [Concomitant]
     Dosage: UNK
  6. JANUVIA [Concomitant]
     Dosage: 100 MG, UNK
  7. VITAMIN B12 [Concomitant]
     Dosage: 2500 UG, UNK
     Route: 060

REACTIONS (4)
  - Death [Fatal]
  - Dizziness [Unknown]
  - Somnolence [Unknown]
  - Intentional product misuse [Unknown]
